FAERS Safety Report 8181324-1 (Version None)
Quarter: 2012Q1

REPORT INFORMATION
  Report Type: 
  Country: None (occurrence: None)
  Receive Date: 20120302
  Receipt Date: 20120224
  Transmission Date: 20120608
  Serious: No
  Sender: FDA-Public Use
  Company Number: US-PFIZER INC-2012050808

PATIENT

DRUGS (5)
  1. SYNTHROID [Concomitant]
     Dosage: 50 MCG, DAILY
  2. ATENOLOL [Concomitant]
     Dosage: 100 MG, DAILY
  3. OXYBUTYNIN CHLORIDE [Concomitant]
     Dosage: 5 MG, DAILY
  4. LYRICA [Suspect]
     Dosage: 75 MG, 2X/DAY
  5. CRESTOR [Concomitant]
     Dosage: 10 MG, DAILY

REACTIONS (1)
  - OFF LABEL USE [None]
